FAERS Safety Report 8099033-6 (Version None)
Quarter: 2012Q1

REPORT INFORMATION
  Report Type: 
  Country: None (occurrence: None)
  Receive Date: 20120131
  Receipt Date: 20120120
  Transmission Date: 20120608
  Serious: Yes (Other)
  Sender: FDA-Public Use
  Company Number: US-JNJFOC-20120109702

PATIENT
  Sex: Female
  Weight: 79.38 kg

DRUGS (4)
  1. REMICADE [Suspect]
     Indication: RHEUMATOID ARTHRITIS
     Route: 042
     Dates: start: 20010901
  2. CYCLOBENZAPRINE [Concomitant]
     Indication: MYALGIA
     Route: 048
     Dates: start: 20010911
  3. FOSAMAX [Concomitant]
     Route: 065
     Dates: end: 20010101
  4. METHOTREXATE [Concomitant]
     Indication: RHEUMATOID ARTHRITIS
     Route: 048
     Dates: start: 20010911

REACTIONS (14)
  - OSTEOPOROSIS [None]
  - TONGUE NEOPLASM [None]
  - INFLAMMATION [None]
  - SKIN DISORDER [None]
  - PANIC ATTACK [None]
  - BASAL CELL CARCINOMA [None]
  - WEIGHT FLUCTUATION [None]
  - GASTROOESOPHAGEAL REFLUX DISEASE [None]
  - INFLUENZA [None]
  - OSTEOPENIA [None]
  - LIVER DISORDER [None]
  - FIBROMYALGIA [None]
  - PAIN [None]
  - VITAMIN D DECREASED [None]
